FAERS Safety Report 5549854-6 (Version None)
Quarter: 2007Q4

REPORT INFORMATION
  Report Type: 
  Country: None (occurrence: None)
  Receive Date: 20071206
  Receipt Date: 20071206
  Transmission Date: 20080405
  Serious: Yes (Hospitalization)
  Sender: FDA-Public Use
  Company Number: None

PATIENT
  Age: 87 Year
  Sex: Male

DRUGS (1)
  1. GLYBURIDE [Suspect]
     Indication: DIABETES MELLITUS
     Dosage: 7.5MG BID PO
     Route: 048
     Dates: start: 19970616, end: 20071203

REACTIONS (2)
  - FRACTURE [None]
  - HYPOGLYCAEMIA [None]
